FAERS Safety Report 21859949 (Version 1)
Quarter: 2023Q1

REPORT INFORMATION
  Report Type: Spontaneous
  Country: US (occurrence: US)
  Receive Date: 20230113
  Receipt Date: 20230113
  Transmission Date: 20230418
  Serious: Yes (Other)
  Sender: FDA-Public Use
  Company Number: US-PFIZER INC-202300014938

PATIENT
  Age: 54 Year
  Sex: Female

DRUGS (1)
  1. XELJANZ XR [Suspect]
     Active Substance: TOFACITINIB CITRATE
     Dosage: 11 MG
     Dates: start: 202207

REACTIONS (4)
  - Autoimmune disorder [Unknown]
  - Infection [Unknown]
  - Arthropathy [Unknown]
  - Joint swelling [Unknown]

NARRATIVE: CASE EVENT DATE: 20230111
